FAERS Safety Report 5319948-9 (Version None)
Quarter: 2007Q2

REPORT INFORMATION
  Report Type: 
  Country: None (occurrence: None)
  Receive Date: 20070502
  Receipt Date: 20070420
  Transmission Date: 20071010
  Serious: Yes (Death, Hospitalization)
  Sender: FDA-Public Use
  Company Number: 2007AL001614

PATIENT
  Age: 76 Year
  Sex: Female

DRUGS (11)
  1. METFORMIN HCL [Suspect]
     Indication: DIABETES MELLITUS
     Dosage: 1 GM;QD;PO
     Route: 048
     Dates: end: 20070320
  2. METOPROLOL SUCCINATE [Concomitant]
  3. CITALOPRAM HYDROBROMIDE [Concomitant]
  4. SIMVASTATIN [Concomitant]
  5. LEVOTHYROXINE SODIUM [Concomitant]
  6. TIMOLOL MALEATE [Concomitant]
  7. HYDROCHLOROTHIAZIDE [Concomitant]
  8. ACETYLSALICYLIC ACID SRT [Concomitant]
  9. OXAZEPAM [Concomitant]
  10. RISPERIDONE [Concomitant]
  11. ENALAPRIL [Concomitant]

REACTIONS (2)
  - LACTIC ACIDOSIS [None]
  - LOSS OF CONSCIOUSNESS [None]
